FAERS Safety Report 15327062 (Version 2)
Quarter: 2019Q1

REPORT INFORMATION
  Report Type: Spontaneous
  Country: CA (occurrence: CA)
  Receive Date: 20180828
  Receipt Date: 20190122
  Transmission Date: 20190417
  Serious: Yes (Other)
  Sender: FDA-Public Use
  Company Number: CA-PFIZER INC-2016475913

PATIENT
  Sex: Female

DRUGS (3)
  1. PREMARIN [Suspect]
     Active Substance: ESTROGENS, CONJUGATED
     Dosage: UNK, DAILY (EVERY DAY SINCE 30 YO)
  2. PREMARIN [Suspect]
     Active Substance: ESTROGENS, CONJUGATED
     Indication: PREMATURE MENOPAUSE
     Dosage: 0.3 MG, 2X/DAY
  3. PREMARIN [Suspect]
     Active Substance: ESTROGENS, CONJUGATED
     Dosage: 0.3 MG 2X/DAY

REACTIONS (11)
  - Dry mouth [Unknown]
  - Hirsutism [Unknown]
  - Sleep disorder [Unknown]
  - Alopecia [Unknown]
  - Hair growth abnormal [Unknown]
  - Menopause delayed [Unknown]
  - Cough [Unknown]
  - Nail disorder [Unknown]
  - Dry skin [Unknown]
  - Product use issue [Unknown]
  - Vein rupture [Not Recovered/Not Resolved]
